FAERS Safety Report 23191562 (Version 2)
Quarter: 2023Q4

REPORT INFORMATION
  Report Type: Spontaneous
  Country: GB (occurrence: GB)
  Receive Date: 20231116
  Receipt Date: 20231214
  Transmission Date: 20240109
  Serious: Yes (Other)
  Sender: FDA-Public Use
  Company Number: GB-PFIZER INC-202300362632

PATIENT
  Age: 19 Year
  Sex: Female
  Weight: 54.2 kg

DRUGS (22)
  1. FRAGMIN [Suspect]
     Active Substance: DALTEPARIN SODIUM
     Indication: Thrombosis prophylaxis
     Dosage: 5000 IU, ONCE A DAY IN EVENING
     Route: 058
     Dates: start: 20230929, end: 20231104
  2. FRAGMIN [Suspect]
     Active Substance: DALTEPARIN SODIUM
     Dosage: 5000 IU, ONCE A DAY IN EVENING
     Route: 058
     Dates: start: 20230929, end: 20231104
  3. FRAGMIN [Suspect]
     Active Substance: DALTEPARIN SODIUM
     Dosage: 10000 IU (INCREASED DOSE)
     Dates: start: 20231104, end: 20231113
  4. BACLOFEN [Concomitant]
     Active Substance: BACLOFEN
     Dosage: 20MG- GASTROSTOMY- SOLUTION QDS
     Dates: start: 20231025
  5. CARBOCYSTEINE [Concomitant]
     Active Substance: CARBOCYSTEINE
     Dosage: 75MG- GASTROSTOMY- SOLUTION TDS
  6. CHLORHEXIDINE [Concomitant]
     Active Substance: CHLORHEXIDINE\CHLORHEXIDINE GLUCONATE
     Dosage: 0.2% MOUTHWASH- OROMUUCOSAL
  7. CLONIDINE [Concomitant]
     Active Substance: CLONIDINE
     Dosage: 25MCG- GASTROSTOMY- BD
     Dates: start: 20231009
  8. DOMPERIDONE [Concomitant]
     Active Substance: DOMPERIDONE
     Dosage: 10MG BD- LIQUID- NASOGASTRIC
     Dates: start: 20231029, end: 20231102
  9. ESOMEPRAZOLE [Concomitant]
     Active Substance: ESOMEPRAZOLE
     Dosage: 20MG- GASTROSTOMY- LIQUID- OD
     Dates: start: 20231031
  10. NAPROXEN [Concomitant]
     Active Substance: NAPROXEN
     Dosage: 250MG- GASTROSTOMY- BD
     Dates: start: 20231030
  11. ACETAMINOPHEN [Concomitant]
     Active Substance: ACETAMINOPHEN
     Dosage: 1G- GASTROSTOMY- DISP- QDS
  12. MOVICOL [Concomitant]
     Active Substance: POLYETHYLENE GLYCOL 3350\POTASSIUM CHLORIDE\SODIUM BICARBONATE\SODIUM CHLORIDE
     Dosage: DOSE BD VIA PEG
  13. PREGABALIN [Concomitant]
     Active Substance: PREGABALIN
     Dosage: 150MG SOL BD- GASTROSTOMY
  14. PROPRANOLOL [Concomitant]
     Active Substance: PROPRANOLOL HYDROCHLORIDE
     Dosage: 80MG SOL- GASTROSTOMY- BD
     Dates: start: 20231002
  15. SIMETHICONE (DIMETHICONE) [Concomitant]
     Active Substance: DIMETHICONE
     Indication: Abdominal distension
     Dosage: 1 ML SIX TIMES A DAY
     Dates: start: 20231016
  16. VITAMINS NOS [Concomitant]
     Active Substance: VITAMINS
     Indication: Supplementation therapy
     Dosage: VITAMINS WITH MINERALS 1 TAB OD
  17. DIAZEPAM [Concomitant]
     Active Substance: DIAZEPAM
     Indication: Anxiety
     Dosage: 2MG TAB OD PRN
     Dates: start: 20231026
  18. MORPHINE [Concomitant]
     Active Substance: MORPHINE
     Indication: Pain
     Dosage: 5MG SOL EVERY 6 HRS PRN PAIN
     Dates: start: 20231001
  19. SODIUM CHLORIDE [Concomitant]
     Active Substance: SODIUM CHLORIDE
     Indication: Dyspnoea
     Dosage: 0.9% NEBULISED PRN
  20. SODIUM CHLORIDE [Concomitant]
     Active Substance: SODIUM CHLORIDE
     Indication: Wheezing
  21. NUTRISON ADVANCED PEPTISORB [Concomitant]
     Indication: Nutritional supplementation
     Dosage: UNK
     Dates: start: 20231026
  22. CALCIUM CHLORIDE\POTASSIUM CHLORIDE\SODIUM CHLORIDE\SODIUM LACTATE [Concomitant]
     Active Substance: CALCIUM CHLORIDE\POTASSIUM CHLORIDE\SODIUM CHLORIDE\SODIUM LACTATE
     Indication: Fluid replacement
     Dosage: UNK
     Dates: start: 20231023

REACTIONS (1)
  - Pulmonary embolism [Unknown]

NARRATIVE: CASE EVENT DATE: 20231104
